FAERS Safety Report 7928550-1 (Version None)
Quarter: 2011Q4

REPORT INFORMATION
  Report Type: 
  Country: None (occurrence: None)
  Receive Date: 20111118
  Receipt Date: 20111107
  Transmission Date: 20120403
  Serious: Yes (Other)
  Sender: FDA-Public Use
  Company Number: JP-BRISTOL-MYERS SQUIBB COMPANY-16224859

PATIENT

DRUGS (6)
  1. METHOTREXATE [Suspect]
  2. ADRIAMYCIN PFS [Suspect]
  3. CISPLATIN [Suspect]
     Route: 041
  4. ETOPOSIDE [Suspect]
  5. PIRARUBICIN [Suspect]
  6. IFOSFAMIDE [Suspect]

REACTIONS (1)
  - ACUTE MYELOID LEUKAEMIA [None]
